FAERS Safety Report 9083878 (Version 1)
Quarter: 2013Q1

REPORT INFORMATION
  Report Type: Spontaneous
  Country: FR (occurrence: FR)
  Receive Date: 20130130
  Receipt Date: 20130130
  Transmission Date: 20140127
  Serious: Yes (Hospitalization)
  Sender: FDA-Public Use
  Company Number: FR-JNJFOC-20130108404

PATIENT
  Age: 25 Year
  Sex: Female

DRUGS (4)
  1. IBUPROFEN [Suspect]
     Indication: TENSION HEADACHE
     Route: 065
  2. IBUPROFEN [Suspect]
     Indication: NECK PAIN
     Route: 065
  3. PARACETAMOL [Concomitant]
     Indication: TENSION HEADACHE
     Route: 065
  4. PARACETAMOL [Concomitant]
     Indication: NECK PAIN
     Route: 065

REACTIONS (4)
  - Meningitis [Recovered/Resolved]
  - Weight decreased [None]
  - Meningitis aseptic [None]
  - Histiocytic necrotising lymphadenitis [None]
